FAERS Safety Report 5595133-0 (Version None)
Quarter: 2008Q1

REPORT INFORMATION
  Report Type: 
  Country: None (occurrence: None)
  Receive Date: 20080117
  Receipt Date: 20071227
  Transmission Date: 20080703
  Serious: No
  Sender: FDA-Public Use
  Company Number: US-BOEHRINGER INGELHEIM PHARMACEUTICALS, INC.-2007-BP-21553BP

PATIENT
  Age: 69 Year
  Sex: Female
  Weight: 55 kg

DRUGS (6)
  1. SPIRIVA [Suspect]
     Indication: EMPHYSEMA
     Route: 055
     Dates: start: 20050801, end: 20070507
  2. ATROVENT [Concomitant]
  3. XOPENEX [Concomitant]
  4. LASIX [Concomitant]
  5. PROZAC [Concomitant]
  6. BENADRYL [Concomitant]

REACTIONS (3)
  - DEPRESSION [None]
  - DRUG INEFFECTIVE [None]
  - OEDEMA PERIPHERAL [None]
